FAERS Safety Report 5638379-5 (Version None)
Quarter: 2008Q1

REPORT INFORMATION
  Report Type: 
  Country: None (occurrence: None)
  Receive Date: 20080222
  Receipt Date: 20080212
  Transmission Date: 20080703
  Serious: Yes (Hospitalization)
  Sender: FDA-Public Use
  Company Number: CERZ-1000053

PATIENT
  Age: 18 Month
  Sex: Male
  Weight: 8 kg

DRUGS (6)
  1. CEREZYME [Suspect]
     Indication: GAUCHER'S DISEASE
     Dosage: 600 U, Q2W, INTRAVENOUS; 400 U, Q2W, INTRAVENOUS
     Route: 042
     Dates: start: 20070506, end: 20080111
  2. CEREZYME [Suspect]
     Indication: GAUCHER'S DISEASE
     Dosage: 600 U, Q2W, INTRAVENOUS; 400 U, Q2W, INTRAVENOUS
     Route: 042
     Dates: start: 20080125
  3. FERRIC PYROPHOSPHATE, SOLUBE [Concomitant]
  4. AMOXICILLIN [Concomitant]
  5. ANTIBIOTICS-RESISTANT LACTICACID BACTERIAE [Concomitant]
  6. CLOSTRIDIUM BUTYRICUM (CLOSTRIDIUM BUTYRICUM) [Concomitant]

REACTIONS (7)
  - ANGIOTENSIN CONVERTING ENZYME INCREASED [None]
  - BLOOD ACID PHOSPHATASE INCREASED [None]
  - EPILEPSY [None]
  - GASTROOESOPHAGEAL REFLUX DISEASE [None]
  - INTERSTITIAL LUNG DISEASE [None]
  - RASH [None]
  - RESPIRATORY DISORDER [None]
